FAERS Safety Report 8047248-5 (Version None)
Quarter: 2012Q1

REPORT INFORMATION
  Report Type: 
  Country: None (occurrence: None)
  Receive Date: 20120116
  Receipt Date: 20120113
  Transmission Date: 20120608
  Serious: Yes (Hospitalization, Other)
  Sender: FDA-Public Use
  Company Number: US-BAYER-2012-004408

PATIENT
  Age: 34 Year
  Sex: Female

DRUGS (6)
  1. FERREX [Concomitant]
  2. TOPAMAX [Concomitant]
  3. BETASERON [Suspect]
     Indication: MULTIPLE SCLEROSIS
     Dosage: 8 MIU, QOD
     Route: 058
     Dates: start: 20100301, end: 20110901
  4. BACLOFEN [Concomitant]
  5. FLOMAX [Concomitant]
  6. BETASERON [Suspect]
     Dosage: 8 MIU, QOD
     Route: 058

REACTIONS (8)
  - RENAL FAILURE [None]
  - ANAEMIA [None]
  - NEPHROLITHIASIS [None]
  - SYNCOPE [None]
  - DEPRESSION [None]
  - RENAL PAIN [None]
  - MULTIPLE SCLEROSIS RELAPSE [None]
  - KIDNEY INFECTION [None]
